FAERS Safety Report 7037571-5 (Version None)
Quarter: 2010Q4

REPORT INFORMATION
  Report Type: 
  Country: None (occurrence: None)
  Receive Date: 20101011
  Receipt Date: 20100921
  Transmission Date: 20110411
  Serious: Yes (Other)
  Sender: FDA-Public Use
  Company Number: PHHY2010BR65977

PATIENT
  Age: 66 Year
  Sex: Female
  Weight: 85 kg

DRUGS (11)
  1. DIOVAN [Suspect]
     Dosage: 320 MG/DAY
  2. HYGROTON [Suspect]
     Dosage: 12.5 MG
  3. HYDRALAZINE HCL [Suspect]
     Dosage: 75 MG/DAY
  4. HYDRALAZINE HCL [Suspect]
     Dosage: 50 MG 3 TIMES DAILY
  5. ATENOLOL [Concomitant]
     Dosage: 100 MG/DAY
  6. ALDOMET [Concomitant]
     Dosage: 500 MG/DAY
  7. SIMVASTATIN [Concomitant]
     Dosage: 20 MG
  8. ATENSINA [Concomitant]
  9. ZANIDIP [Concomitant]
     Dosage: 20 MG
  10. ROSUVASTATIN [Concomitant]
     Dosage: 10 MG
  11. ASPIRIN [Concomitant]
     Dosage: 100 MG

REACTIONS (12)
  - AORTIC DISORDER [None]
  - BLOOD PRESSURE INADEQUATELY CONTROLLED [None]
  - CHEST PAIN [None]
  - CORONARY ARTERY DISEASE [None]
  - DIZZINESS [None]
  - GOITRE [None]
  - HYPOTENSION [None]
  - OEDEMA PERIPHERAL [None]
  - PROTEINURIA [None]
  - RENAL CYST [None]
  - SLEEP APNOEA SYNDROME [None]
  - WEIGHT DECREASED [None]
